FAERS Safety Report 17402255 (Version 3)
Quarter: 2020Q4

REPORT INFORMATION
  Report Type: Spontaneous
  Country: US (occurrence: US)
  Receive Date: 20200211
  Receipt Date: 20201009
  Transmission Date: 20210113
  Serious: Yes (Life-Threatening, Hospitalization, Other)
  Sender: FDA-Public Use
  Company Number: US-HIKMA PHARMACEUTICALS USA INC.-US-H14001-20-00484

PATIENT
  Age: 19 Year
  Sex: Male
  Weight: 103.55 kg

DRUGS (15)
  1. INCB018424 [Suspect]
     Active Substance: RUXOLITINIB
     Indication: B PRECURSOR TYPE ACUTE LEUKAEMIA
     Route: 048
     Dates: start: 20190218, end: 20191027
  2. PEGASPARGASE [Suspect]
     Active Substance: PEGASPARGASE
     Indication: B PRECURSOR TYPE ACUTE LEUKAEMIA
     Dosage: UNKNOWN
     Route: 042
     Dates: start: 20190218, end: 20191027
  3. METHOTREXATE. [Suspect]
     Active Substance: METHOTREXATE
     Indication: B PRECURSOR TYPE ACUTE LEUKAEMIA
     Dosage: UNKNOWN
     Route: 042
     Dates: start: 20190218, end: 20191127
  4. INCB018424 [Suspect]
     Active Substance: RUXOLITINIB
     Route: 048
     Dates: start: 20191126
  5. VINCRISTINE [Suspect]
     Active Substance: VINCRISTINE
     Dosage: UNKNOWN
     Route: 042
     Dates: start: 20191126
  6. PEGASPARGASE [Suspect]
     Active Substance: PEGASPARGASE
     Dosage: UNKNOWN
     Route: 042
     Dates: start: 20191029, end: 20191118
  7. INCB018424 [Suspect]
     Active Substance: RUXOLITINIB
     Route: 048
     Dates: start: 20191029, end: 20191118
  8. PEGASPARGASE [Suspect]
     Active Substance: PEGASPARGASE
     Dosage: UNKNOWN
     Route: 042
     Dates: start: 20191126
  9. METHOTREXATE. [Suspect]
     Active Substance: METHOTREXATE
     Dosage: UNKNOWN
     Route: 042
     Dates: start: 20191126
  10. VINCRISTINE [Suspect]
     Active Substance: VINCRISTINE
     Indication: B PRECURSOR TYPE ACUTE LEUKAEMIA
     Dosage: UNKNOWN
     Route: 042
     Dates: start: 20190218, end: 20191127
  11. BACTRIM [Concomitant]
     Active Substance: SULFAMETHOXAZOLE\TRIMETHOPRIM
     Indication: PRODUCT USED FOR UNKNOWN INDICATION
     Dosage: UNKNOWN
     Route: 065
     Dates: start: 20200316
  12. VINCRISTINE [Suspect]
     Active Substance: VINCRISTINE
     Dosage: UNKNOWN
     Route: 042
     Dates: start: 20191029, end: 20191118
  13. MOTRIN [Concomitant]
     Active Substance: IBUPROFEN
     Indication: PRODUCT USED FOR UNKNOWN INDICATION
     Dosage: UNKNOWN
     Route: 065
     Dates: start: 20200316
  14. METHOTREXATE. [Suspect]
     Active Substance: METHOTREXATE
     Dosage: UNKNOWN
     Route: 042
     Dates: start: 20191029, end: 20191118
  15. HYDROHYZINE [Concomitant]
     Indication: PRODUCT USED FOR UNKNOWN INDICATION
     Dosage: UNKNOWN
     Route: 065
     Dates: start: 20190218

REACTIONS (11)
  - Iron overload [Unknown]
  - Petechiae [Unknown]
  - Pyrexia [Recovered/Resolved]
  - Thrombocytopenia [Unknown]
  - Hepatic mass [Unknown]
  - Hepatic steatosis [Unknown]
  - Cholelithiasis [Unknown]
  - Gamma-glutamyltransferase increased [Recovering/Resolving]
  - Colitis [Recovered/Resolved]
  - Abdominal pain [Recovered/Resolved]
  - Pyelonephritis [Unknown]

NARRATIVE: CASE EVENT DATE: 20191025
